FAERS Safety Report 10471394 (Version 1)
Quarter: 2014Q3

REPORT INFORMATION
  Report Type: Spontaneous
  Country: US (occurrence: US)
  Receive Date: 20140923
  Receipt Date: 20140923
  Transmission Date: 20150326
  Serious: Yes (Death, Hospitalization, Other)
  Sender: FDA-Public Use
  Company Number: US-B.I. PHARMACEUTICALS,INC./RIDGEFIELD-2014-BI-44626BP

PATIENT
  Age: 60 Year
  Sex: Male

DRUGS (6)
  1. LOPRESSOR [Concomitant]
     Active Substance: METOPROLOL TARTRATE
     Indication: PRODUCT USED FOR UNKNOWN INDICATION
     Route: 065
  2. PRADAXA [Suspect]
     Active Substance: DABIGATRAN ETEXILATE MESYLATE
     Indication: ATRIAL FIBRILLATION
     Route: 065
     Dates: end: 201203
  3. CLONAZEPAM. [Concomitant]
     Active Substance: CLONAZEPAM
     Indication: PRODUCT USED FOR UNKNOWN INDICATION
     Route: 065
  4. LISINOPRIL. [Concomitant]
     Active Substance: LISINOPRIL
     Indication: PRODUCT USED FOR UNKNOWN INDICATION
     Route: 065
  5. AMIODARONE [Concomitant]
     Active Substance: AMIODARONE
     Indication: PRODUCT USED FOR UNKNOWN INDICATION
     Route: 065
  6. SIMVASTATIN. [Concomitant]
     Active Substance: SIMVASTATIN
     Indication: PRODUCT USED FOR UNKNOWN INDICATION
     Route: 065

REACTIONS (17)
  - Gastrointestinal haemorrhage [Unknown]
  - Hypoglycaemia [Unknown]
  - Cardiac tamponade [Unknown]
  - Sepsis [Unknown]
  - Shock haemorrhagic [Fatal]
  - Respiratory failure [Fatal]
  - Multi-organ failure [Fatal]
  - Cardiac failure [Fatal]
  - Hepatotoxicity [Unknown]
  - Supraventricular tachycardia [Unknown]
  - Hepatic haematoma [Unknown]
  - Gastritis [Unknown]
  - Renal failure acute [Fatal]
  - Intra-abdominal haemorrhage [Recovered/Resolved]
  - Pleural effusion [Unknown]
  - Hepatic failure [Fatal]
  - Pericardial effusion [Unknown]

NARRATIVE: CASE EVENT DATE: 201203
